APPROVED DRUG PRODUCT: BIVALIRUDIN IN 0.9% SODIUM CHLORIDE
Active Ingredient: BIVALIRUDIN
Strength: 250MG/50ML (5MG/ML)
Dosage Form/Route: SOLUTION;INTRAVENOUS
Application: N208374 | Product #001
Applicant: BAXTER HEALTHCARE CORP
Approved: Dec 21, 2017 | RLD: Yes | RS: No | Type: DISCN